FAERS Safety Report 4825187-8 (Version None)
Quarter: 2005Q4

REPORT INFORMATION
  Report Type: 
  Country: None (occurrence: None)
  Receive Date: 20051109
  Receipt Date: 20051101
  Transmission Date: 20060501
  Serious: Yes (Other)
  Sender: FDA-Public Use
  Company Number: 028-20785-05100033

PATIENT
  Age: 63 Year
  Sex: Male

DRUGS (7)
  1. THALOMID [Suspect]
     Indication: MYELOFIBROSIS
     Dosage: 50 MG, DAILY AT BEDTIME , ORAL
     Route: 048
     Dates: start: 20040622, end: 20050502
  2. THALOMID [Suspect]
  3. PLAQUENIL [Concomitant]
  4. METOPROLOL TARTRATE [Concomitant]
  5. MOTRIN [Concomitant]
  6. LOSEC (OMEPRAZOLE) [Concomitant]
  7. FOSAMAX [Concomitant]

REACTIONS (2)
  - DYSPNOEA [None]
  - PULMONARY HYPERTENSION [None]
